FAERS Safety Report 9350899 (Version 4)
Quarter: 2013Q3

REPORT INFORMATION
  Report Type: Spontaneous
  Country: US (occurrence: US)
  Receive Date: 20130617
  Receipt Date: 20130715
  Transmission Date: 20140515
  Serious: Yes (Other)
  Sender: FDA-Public Use
  Company Number: US-BAYER-2013-071342

PATIENT
  Age: 33 Year
  Sex: Female
  Weight: 91.52 kg

DRUGS (1)
  1. MIRENA [Suspect]
     Indication: CONTRACEPTION
     Dosage: 20 MCG/24HR, CONT
     Route: 015
     Dates: start: 20120312, end: 20130606

REACTIONS (7)
  - Embedded device [Recovered/Resolved]
  - Complication of device removal [Recovered/Resolved]
  - Device breakage [Recovered/Resolved]
  - Device malfunction [Recovered/Resolved]
  - Hirsutism [Recovered/Resolved]
  - Hot flush [Recovered/Resolved]
  - Libido decreased [Recovered/Resolved]
